FAERS Safety Report 9245422 (Version 2)
Quarter: 2013Q2

REPORT INFORMATION
  Report Type: Report from Study
  Country: FR (occurrence: FR)
  Receive Date: 20130422
  Receipt Date: 20130501
  Transmission Date: 20140414
  Serious: Yes (Hospitalization)
  Sender: FDA-Public Use
  Company Number: FR-ELI_LILLY_AND_COMPANY-FR201304003395

PATIENT
  Age: 53 Year
  Sex: Male
  Weight: 26.3 kg

DRUGS (12)
  1. PEMETREXED [Suspect]
     Indication: NON-SMALL CELL LUNG CANCER
     Dosage: 885 MG, OTHER
     Route: 042
     Dates: start: 20130221, end: 20130221
  2. FOLIC ACID [Concomitant]
     Indication: PREMEDICATION
     Dosage: UNK
     Dates: start: 20130219, end: 20130227
  3. VITAMIN B12 [Concomitant]
     Indication: PREMEDICATION
     Dosage: UNK
     Dates: start: 20130219, end: 20130227
  4. DEXAMETHASONE [Concomitant]
     Indication: PREMEDICATION
     Dosage: UNK
     Dates: start: 20130219
  5. LYSINE ACETYLSALICYLIC [Concomitant]
     Indication: CEREBROVASCULAR ACCIDENT
     Dosage: UNK
  6. PARACETAMOL [Concomitant]
     Indication: PAIN
     Dosage: UNK
  7. MIRTAZAPINE [Concomitant]
     Indication: DEPRESSION
     Dosage: UNK
  8. OXYCODONE [Concomitant]
     Indication: PAIN
  9. OXAZEPAM [Concomitant]
     Indication: DEPRESSION
     Dosage: UNK
  10. LORMETAZEPAM [Concomitant]
     Indication: INSOMNIA
     Dosage: UNK
  11. LEVOMEPROMAZINE [Concomitant]
     Indication: DEPRESSION
     Dosage: UNK
  12. ALIMEMAZINE TARTRATE [Concomitant]
     Indication: DEPRESSION
     Dosage: UNK

REACTIONS (2)
  - Dermatitis exfoliative [Recovered/Resolved]
  - Bone marrow failure [Recovered/Resolved]
